FAERS Safety Report 21145042 (Version 1)
Quarter: 2022Q3

REPORT INFORMATION
  Report Type: Spontaneous
  Country: CA (occurrence: CA)
  Receive Date: 20220729
  Receipt Date: 20220729
  Transmission Date: 20221027
  Serious: Yes (Other)
  Sender: FDA-Public Use
  Company Number: CA-BAXTER-2022BAX015479

PATIENT
  Age: 22 Year
  Sex: Male

DRUGS (97)
  1. CYCLOPHOSPHAMIDE [Suspect]
     Active Substance: CYCLOPHOSPHAMIDE
     Indication: Prophylaxis against graft versus host disease
     Dosage: 3750 MILLIGRAM, DOSAGE FORM: POWDER FOR SOLUTION FOR INJECTION
     Route: 065
  2. CYCLOPHOSPHAMIDE [Suspect]
     Active Substance: CYCLOPHOSPHAMIDE
     Dosage: 3750 MILLIGRAM, DOSAGE FORM: NOT SPECIFIED
     Route: 065
  3. THYMOGLOBULIN [Suspect]
     Active Substance: LAPINE T-LYMPHOCYTE IMMUNE GLOBULIN
     Indication: Prophylaxis against graft versus host disease
     Dosage: 50.0 MILLIGRAM, DOSAGE FORM: POWDER FOR SOLUTION INTRAVENOUS
     Route: 065
  4. THYMOGLOBULIN [Suspect]
     Active Substance: LAPINE T-LYMPHOCYTE IMMUNE GLOBULIN
     Dosage: 220.0 MILLIGRAM, DOSAGE FORM: POWDER FOR SOLUTION FOR INFUSION
     Route: 065
  5. ACYCLOVIR [Concomitant]
     Active Substance: ACYCLOVIR
     Indication: Infection prophylaxis
     Dosage: 400.0 MILLIGRAM, 1 EVERY 8 HOURS
     Route: 048
  6. ACYCLOVIR [Concomitant]
     Active Substance: ACYCLOVIR
     Dosage: 400.0 MILLIGRAM, 1 EVERY 8 HOURS, INTRAVENOUS (NOT OTHERWISE SPECIFIED)
     Route: 042
  7. ACYCLOVIR [Concomitant]
     Active Substance: ACYCLOVIR
     Dosage: 400.0 MILLIGRAM, 1 EVERY 8 HOURS
     Route: 048
  8. ALANYL GLUTAMINE [Concomitant]
     Active Substance: ALANYL GLUTAMINE
     Indication: Infection prophylaxis
     Dosage: 1.0 DOSAGE FORMS, 1 EVERY 8 HOURS,
     Route: 048
  9. ALUMINUM HYDROXIDE [Concomitant]
     Active Substance: ALUMINUM HYDROXIDE
     Indication: Hyperphosphataemia
     Dosage: 30.0 ML, TOTAL,
     Route: 048
  10. APREPITANT [Concomitant]
     Active Substance: APREPITANT
     Indication: Prophylaxis of nausea and vomiting
     Dosage: 125.0 MILLIGRAM, TOTAL
     Route: 048
  11. APREPITANT [Concomitant]
     Active Substance: APREPITANT
     Dosage: 80.0 MILLIGRAM, 1 EVERY 1 DAYS
     Route: 048
  12. BACTRIM [Concomitant]
     Active Substance: SULFAMETHOXAZOLE\TRIMETHOPRIM
     Indication: Infection prophylaxis
     Dosage: 1 EVERY 1 DAYS, DOSAGE FORM: NOT SPECIFIED
     Route: 048
  13. CEFTAZIDIME [Concomitant]
     Active Substance: CEFTAZIDIME
     Indication: Antibiotic therapy
     Dosage: 2.0 GRAM, 1 EVERY 8 HOURS, DOSAGE FORM: POWDER FOR SOLUTION, INTRAVENOUS (NOT OTHERWISE SPECIFIED)
     Route: 042
  14. CEFTRIAXONE [Concomitant]
     Active Substance: CEFTRIAXONE
     Indication: Anti-infective therapy
     Dosage: 1 EVERY 1 DAYS, INTRAVENOUS (NOT OTHERWISE SPECIFIED)
     Route: 042
  15. CYCLOSPORINE [Concomitant]
     Active Substance: CYCLOSPORINE
     Indication: Immunosuppression
     Dosage: 350.0 MILLIGRAM, 1 EVERY 12 HOURS,
     Route: 048
  16. CYCLOSPORINE [Concomitant]
     Active Substance: CYCLOSPORINE
     Dosage: 250.0 MILLIGRAM, 1 EVERY 12 HOURS,
     Route: 048
  17. CYCLOSPORINE [Concomitant]
     Active Substance: CYCLOSPORINE
     Dosage: 250.0 MILLIGRAM, 1 EVERY 12 HOURS,
     Route: 048
  18. CYCLOSPORINE [Concomitant]
     Active Substance: CYCLOSPORINE
     Dosage: 250.0 MILLIGRAM, 1 EVERY 12 HOURS,
     Route: 048
  19. CYCLOSPORINE [Concomitant]
     Active Substance: CYCLOSPORINE
     Dosage: 275.0 MILLIGRAM, 1 EVERY 12 HOURS, DOSAGE FORM: NOT SPECIFIED, INTRAVENOUS (NOT OTHERWISE SPECIFIED)
     Route: 042
  20. CYCLOSPORINE [Concomitant]
     Active Substance: CYCLOSPORINE
     Dosage: 75.0 MILLIGRAM, TOTAL, INTRAVENOUS (NOT OTHERWISE SPECIFIED)
     Route: 042
  21. CYCLOSPORINE [Concomitant]
     Active Substance: CYCLOSPORINE
     Dosage: 300.0 MILLIGRAM, 1 EVERY 12 HOURS,
     Route: 048
  22. CYCLOSPORINE [Concomitant]
     Active Substance: CYCLOSPORINE
     Dosage: 300.0 MILLIGRAM, 1 EVERY 12 HOURS, INTRAVENOUS (NOT OTHERWISE SPECIFIED)
     Route: 042
  23. CYCLOSPORINE [Concomitant]
     Active Substance: CYCLOSPORINE
     Dosage: 275.0 MILLIGRAM, 1 EVERY 1 DAYS, INTRAVENOUS (NOT OTHERWISE SPECIFIED)
     Route: 042
  24. CYCLOSPORINE [Concomitant]
     Active Substance: CYCLOSPORINE
     Dosage: 250.0 MILLIGRAM, 1 EVERY 1 DAYS, INTRAVENOUS (NOT OTHERWISE SPECIFIED)
     Route: 042
  25. CYCLOSPORINE [Concomitant]
     Active Substance: CYCLOSPORINE
     Dosage: 300.0 MILLIGRAM, 1 EVERY 12 HOURS
     Route: 048
  26. CYCLOSPORINE [Concomitant]
     Active Substance: CYCLOSPORINE
     Dosage: 325.0 MILLIGRAM, 1 EVERY 12 HOURS, INTRAVENOUS (NOT OTHERWISE SPECIFIED)
     Route: 042
  27. DEXAMETHASONE [Concomitant]
     Active Substance: DEXAMETHASONE
     Indication: Nausea
     Dosage: 12.0 MILLIGRAM, TOTAL, INTRAVENOUS (NOT OTHERWISE SPECIFIED)
     Route: 042
  28. DEXAMETHASONE [Concomitant]
     Active Substance: DEXAMETHASONE
     Dosage: 8.0 MILLIGRAM, TOTAL, INTRAVENOUS (NOT OTHERWISE SPECIFIED)
     Route: 042
  29. DEXAMETHASONE [Concomitant]
     Active Substance: DEXAMETHASONE
     Dosage: 8.0 MILLIGRAM, 1 EVERY 1 DAYS, INTRAVENOUS (NOT OTHERWISE SPECIFIED)
     Route: 042
  30. DEXAMETHASONE [Concomitant]
     Active Substance: DEXAMETHASONE
     Dosage: 12.0 MILLIGRAM, TOTAL, DOSAGE FORM: NOT SPECIFIED, INTRAVENOUS (NOT OTHERWISE SPECIFIED)
     Route: 042
  31. DILAUDID [Concomitant]
     Active Substance: HYDROMORPHONE HYDROCHLORIDE
     Indication: Pain
     Dosage: 0.4 MILLIGRAM, TOTAL, DOSAGE FORM: NOT SPECIFIED, INTRAVENOUS (NOT OTHERWISE SPECIFIED)
     Route: 042
  32. DIPHENHYDRAMINE [Concomitant]
     Active Substance: DIPHENHYDRAMINE
     Indication: Product used for unknown indication
     Dosage: 50.0 MILLIGRAM, INTRAVENOUS (NOT OTHERWISE SPECIFIED)
     Route: 042
  33. DIPHENHYDRAMINE [Concomitant]
     Active Substance: DIPHENHYDRAMINE
     Dosage: 50.0 MILLIGRAM, INTRAVENOUS (NOT OTHERWISE SPECIFIED)
     Route: 042
  34. FLUCONAZOLE [Concomitant]
     Active Substance: FLUCONAZOLE
     Indication: Antifungal prophylaxis
     Dosage: 400.0 MILLIGRAM, 1 EVERY 1 DAYS
     Route: 048
  35. FLUCONAZOLE [Concomitant]
     Active Substance: FLUCONAZOLE
     Dosage: 400.0 MILLIGRAM, 1 EVERY 1 DAYS
     Route: 048
  36. FLUCONAZOLE [Concomitant]
     Active Substance: FLUCONAZOLE
     Dosage: 400.0 MILLIGRAM, 1 EVERY 1 DAYS, DOSAGE FORM: NOT SPECIFIED
     Route: 048
  37. FLUCONAZOLE [Concomitant]
     Active Substance: FLUCONAZOLE
     Dosage: 400.0 MILLIGRAM, 1 EVERY 1 DAYS, INTRAVENOUS (NOT OTHERWISE SPECIFIED)
     Route: 042
  38. FOLIC ACID [Concomitant]
     Active Substance: FOLIC ACID
     Indication: Product used for unknown indication
     Dosage: 1.0 MILLIGRAM, 1 EVERY 1 DAYS, DOSAGE FORM: NOT SPECIFIED
     Route: 048
  39. FUCIDIN [Concomitant]
     Active Substance: FUSIDATE SODIUM
     Indication: Acne
     Route: 061
  40. FUROSEMIDE [Concomitant]
     Active Substance: FUROSEMIDE
     Indication: Fluid balance positive
     Dosage: 40.0 MILLIGRAM, 1 EVERY 12 HOURS, DOSAGE FORM: NOT SPECIFIED, INTRAVENOUS (NOT OTHERWISE SPECIFIED)
     Route: 042
  41. FUROSEMIDE [Concomitant]
     Active Substance: FUROSEMIDE
     Dosage: 40.0 MILLIGRAM, INTRAVENOUS (NOT OTHERWISE SPECIFIED)
     Route: 042
  42. FUROSEMIDE [Concomitant]
     Active Substance: FUROSEMIDE
     Dosage: 40.0 MILLIGRAM, 1 EVERY 12 HOURS, INTRAVENOUS (NOT OTHERWISE SPECIFIED)
     Route: 042
  43. HYDROMORPHONE [Concomitant]
     Active Substance: HYDROMORPHONE
     Indication: Pain
     Dosage: INTRAVENOUS (NOT OTHERWISE SPECIFIED)
     Route: 042
  44. HYDROMORPHONE [Concomitant]
     Active Substance: HYDROMORPHONE
     Indication: Mucosal pain
     Dosage: 0.5 MILLIGRAM, TOTAL, INTRAVENOUS (NOT OTHERWISE SPECIFIED)
     Route: 042
  45. HYDROMORPHONE [Concomitant]
     Active Substance: HYDROMORPHONE
     Dosage: 0.7 MILLIGRAM, TOTAL, INTRAVENOUS (NOT OTHERWISE SPECIFIED)
     Route: 042
  46. HYDROMORPHONE [Concomitant]
     Active Substance: HYDROMORPHONE
     Dosage: 0.3 MILLIGRAM, TOTAL, INTRAVENOUS (NOT OTHERWISE SPECIFIED)
     Route: 042
  47. HYDROMORPHONE [Concomitant]
     Active Substance: HYDROMORPHONE
     Dosage: 0.4 MILLIGRAM, TOTAL, INTRAVENOUS (NOT OTHERWISE SPECIFIED)
     Route: 042
  48. HYDROMORPHONE [Concomitant]
     Active Substance: HYDROMORPHONE
     Dosage: 1 MILLIGRAM, INTRAVENOUS (NOT OTHERWISE SPECIFIED)
     Route: 042
  49. HYDROMORPHONE [Concomitant]
     Active Substance: HYDROMORPHONE
     Dosage: 0.5 MILLIGRAM, TOTAL, INTRAVENOUS (NOT OTHERWISE SPECIFIED)
     Route: 042
  50. HYDROMORPHONE [Concomitant]
     Active Substance: HYDROMORPHONE
     Dosage: 0.6 MILLIGRAM, TOTAL, INTRAVENOUS (NOT OTHERWISE SPECIFIED)
     Route: 042
  51. HYDROMORPHONE [Concomitant]
     Active Substance: HYDROMORPHONE
     Dosage: 0.7 MILLIGRAM, TOTAL, INTRAVENOUS (NOT OTHERWISE SPECIFIED)
     Route: 042
  52. HYDROMORPHONE [Concomitant]
     Active Substance: HYDROMORPHONE
     Dosage: 0.2 MILLIGRAM, TOTAL, INTRAVENOUS (NOT OTHERWISE SPECIFIED)
     Route: 042
  53. HYDROMORPHONE [Concomitant]
     Active Substance: HYDROMORPHONE
     Dosage: DOSAGE FORM: NOT SPECIFIED
     Route: 048
  54. LIDOCAINE [Concomitant]
     Active Substance: LIDOCAINE
     Indication: Oral pain
     Dosage: 15.0 ML, DOSAGE FORM: OINTMENT TOPICAL
     Route: 065
  55. MAGNESIUM BISGLYCINATE [Concomitant]
     Indication: Hypomagnesaemia
     Dosage: 400.0 MILLIGRAM, 1 EVERY 8 HOURS
     Route: 048
  56. MAGNESIUM SULFATE [Concomitant]
     Active Substance: MAGNESIUM SULFATE
     Indication: Hypomagnesaemia
     Dosage: 2.0 GRAM, INTRAVENOUS (NOT OTHERWISE SPECIFIED)
     Route: 042
  57. MAGNESIUM SULFATE [Concomitant]
     Active Substance: MAGNESIUM SULFATE
     Dosage: 2.0 GRAM, INTRAVENOUS (NOT OTHERWISE SPECIFIED)
     Route: 042
  58. MAGNESIUM SULFATE [Concomitant]
     Active Substance: MAGNESIUM SULFATE
     Dosage: 2.0 GRAM, TOTAL, INTRAVENOUS (NOT OTHERWISE SPECIFIED)
     Route: 042
  59. MESNA [Concomitant]
     Active Substance: MESNA
     Indication: Chemotherapy side effect prophylaxis
     Dosage: 1200.0 MILLIGRAM, 1 EVERY 1 DAYS, INTRAVENOUS (NOT OTHERWISE SPECIFIED)
     Route: 042
  60. MESNA [Concomitant]
     Active Substance: MESNA
     Dosage: 1200.0 MILLIGRAM, 1 EVERY 2 HOURS, DOSAGE FORM: NOT SPECIFIED, INTRAVENOUS (NOT OTHERWISE SPECIFIED)
     Route: 042
  61. METHYLPREDNISOLONE [Concomitant]
     Active Substance: METHYLPREDNISOLONE
     Indication: Premedication
     Dosage: 40.0 MILLIGRAM, 1 EVERY 12 HOURS, INTRAVENOUS (NOT OTHERWISE SPECIFIED)
     Route: 042
  62. METHYLPREDNISOLONE [Concomitant]
     Active Substance: METHYLPREDNISOLONE
     Dosage: 40.0 MILLIGRAM, 1 EVERY 12 HOURS, INTRAVENOUS (NOT OTHERWISE SPECIFIED)
     Route: 042
  63. METOCLOPRAMIDE HYDROCHLORIDE [Concomitant]
     Active Substance: METOCLOPRAMIDE HYDROCHLORIDE
     Indication: Nausea
     Dosage: 10.0 MILLIGRAM, 1 EVERY 8 HOURS, INTRAVENOUS (NOT OTHERWISE SPECIFIED)
     Route: 042
  64. METOCLOPRAMIDE HYDROCHLORIDE [Concomitant]
     Active Substance: METOCLOPRAMIDE HYDROCHLORIDE
     Dosage: 10.0 MILLIGRAM, INTRAVENOUS (NOT OTHERWISE SPECIFIED)
     Route: 042
  65. SODIUM CHLORIDE [Concomitant]
     Active Substance: SODIUM CHLORIDE
     Indication: Dehydration
     Dosage: DOSAGE FORM: INJECTION, TOTAL, INTRAVENOUS (NOT OTHERWISE SPECIFIED), INJECTION
     Route: 042
  66. NIACINAMIDE\PYRIDOXINE HYDROCHLORIDE\TYROSINE [Concomitant]
     Active Substance: NIACINAMIDE\PYRIDOXINE HYDROCHLORIDE\TYROSINE
     Indication: Nutritional supplementation
     Dosage: 1 EVERY 1 DAYS, INTRAVENOUS (NOT OTHERWISE SPECIFIED)
     Route: 042
  67. NIACINAMIDE\PYRIDOXINE HYDROCHLORIDE\TYROSINE [Concomitant]
     Active Substance: NIACINAMIDE\PYRIDOXINE HYDROCHLORIDE\TYROSINE
     Dosage: INTRAVENOUS (NOT OTHERWISE SPECIFIED)
     Route: 042
  68. NIACINAMIDE\PYRIDOXINE HYDROCHLORIDE\TYROSINE [Concomitant]
     Active Substance: NIACINAMIDE\PYRIDOXINE HYDROCHLORIDE\TYROSINE
     Dosage: TOTAL, INTRAVENOUS (NOT OTHERWISE SPECIFIED)
     Route: 042
  69. NIACINAMIDE\PYRIDOXINE HYDROCHLORIDE\TYROSINE [Concomitant]
     Active Substance: NIACINAMIDE\PYRIDOXINE HYDROCHLORIDE\TYROSINE
     Dosage: INTRAVENOUS (NOT OTHERWISE SPECIFIED)
     Route: 042
  70. NYSTATIN [Concomitant]
     Active Substance: NYSTATIN
     Indication: Antifungal treatment
     Dosage: 1 EVERY 6 HOURS, DOSAGE FORM: NOT SPECIFIED
     Route: 048
  71. OLANZAPINE [Concomitant]
     Active Substance: OLANZAPINE
     Indication: Nausea
     Dosage: 5.0 MILLIGRAM 1 EVERY 12 HOURS,
     Route: 048
  72. ONDANSETRON [Concomitant]
     Active Substance: ONDANSETRON
     Indication: Antiemetic supportive care
     Dosage: 8.0 MILLIGRAM, 1 EVERY 8 HOURS
     Route: 048
  73. ONDANSETRON [Concomitant]
     Active Substance: ONDANSETRON
     Dosage: 8.0 MILLIGRAM, 1 EVERY 8 HOURS, INTRAVENOUS (NOT OTHERWISE SPECIFIED)
     Route: 042
  74. ONDANSETRON [Concomitant]
     Active Substance: ONDANSETRON
     Dosage: 8.0 MILLIGRAM, TOTAL, INTRAVENOUS (NOT OTHERWISE SPECIFIED)
     Route: 042
  75. ONDANSETRON [Concomitant]
     Active Substance: ONDANSETRON
     Dosage: 8.0 MILLIGRAM
     Route: 048
  76. ONDANSETRON [Concomitant]
     Active Substance: ONDANSETRON
     Dosage: 8.0 MILLIGRAM, 1 EVERY 8 HOURS
     Route: 048
  77. ONDANSETRON [Concomitant]
     Active Substance: ONDANSETRON
     Dosage: 8.0 MILLIGRAM, 1 EVERY 8 HOURS, DOSAGE FORM: NOT SPECIFIED
     Route: 048
  78. ONDANSETRON [Concomitant]
     Active Substance: ONDANSETRON
     Dosage: 8.0 MILLIGRAM, INTRAVENOUS (NOT OTHERWISE SPECIFIED)
     Route: 042
  79. PANTOPRAZOLE [Concomitant]
     Active Substance: PANTOPRAZOLE
     Indication: Product used for unknown indication
     Dosage: 40.0 MILLIGRAM, 1 EVERY 1 DAYS, DOSAGE FORM: NOT SPECIFIED
     Route: 048
  80. PANTOPRAZOLE [Concomitant]
     Active Substance: PANTOPRAZOLE
     Dosage: 40.0 MILLIGRAM, 1 EVERY 1 DAYS, INTRAVENOUS (NOT OTHERWISE SPECIFIED)
     Route: 042
  81. PHENYTOIN [Concomitant]
     Active Substance: PHENYTOIN
     Indication: Seizure prophylaxis
     Dosage: 400.0 MILLIGRAM,
     Route: 048
  82. PHENYTOIN [Concomitant]
     Active Substance: PHENYTOIN
     Dosage: 1500.0 MILLIGRAM, TOTAL, INTRAVENOUS (NOT OTHERWISE SPECIFIED)
     Route: 042
  83. PIPERACILLIN SODIUM\TAZOBACTAM SODIUM [Concomitant]
     Active Substance: PIPERACILLIN SODIUM\TAZOBACTAM SODIUM
     Indication: Pyrexia
     Dosage: 4.5 MILLIGRAM, 1 EVERY 8 HOURS, INTRAVENOUS (NOT OTHERWISE SPECIFIED)
     Route: 042
  84. PIPERACILLIN SODIUM\TAZOBACTAM SODIUM [Concomitant]
     Active Substance: PIPERACILLIN SODIUM\TAZOBACTAM SODIUM
     Indication: Febrile neutropenia
     Dosage: 4.5 GRAM, 1 EVERY 8 HOURS, INTRAVENOUS (NOT OTHERWISE SPECIFIED)
     Route: 042
  85. REZAFUNGIN [Concomitant]
     Active Substance: REZAFUNGIN
     Indication: Antifungal prophylaxis
     Dosage: 200.0 MILLIGRAM, 1 EVERY 1 WEEKS, INTRAVENOUS (NOT OTHERWISE SPECIFIED)
     Route: 042
  86. REZAFUNGIN [Concomitant]
     Active Substance: REZAFUNGIN
     Dosage: 400.0 MILLIGRAM, TOTAL, INTRAVENOUS (NOT OTHERWISE SPECIFIED)
     Route: 042
  87. URSODIOL [Concomitant]
     Active Substance: URSODIOL
     Indication: Venoocclusive disease
     Dosage: 625.0 MILLIGRAM, 1 EVERY 12 HOURS, DOSAGE FORM: NOT SPECIFIED
     Route: 048
  88. VALGANCICLOVIR [Concomitant]
     Active Substance: VALGANCICLOVIR
     Indication: Product used for unknown indication
     Dosage: 900.0 MILLIGRAM, 1 EVERY 1 DAYS, DOSAGE FORM: NOT SPECIFIED
     Route: 048
  89. VANCOMYCIN [Concomitant]
     Active Substance: VANCOMYCIN
     Indication: Antibiotic therapy
     Dosage: 1250.0 MILLIGRAM, 1 EVERY 8 HOURS, INTRAVENOUS (NOT OTHERWISE SPECIFIED)
     Route: 042
  90. VANCOMYCIN [Concomitant]
     Active Substance: VANCOMYCIN
     Dosage: 1.5 GRAM, 1 EVERY 8 HOURS, INTRAVENOUS (NOT OTHERWISE SPECIFIED)
     Route: 042
  91. VANCOMYCIN [Concomitant]
     Active Substance: VANCOMYCIN
     Dosage: 1.5 GRAM, 1 EVERY 8 HOURS, INTRAVENOUS (NOT OTHERWISE SPECIFIED), DOSAGE FORM: NOT SPECIFIED
     Route: 042
  92. VANCOMYCIN [Concomitant]
     Active Substance: VANCOMYCIN
     Dosage: 1.5 MILLIGRAM, 1 EVERY 8 HOURS, INTRAVENOUS (NOT OTHERWISE SPECIFIED)
     Route: 042
  93. VANCOMYCIN [Concomitant]
     Active Substance: VANCOMYCIN
     Dosage: 1750.0 MILLIGRAM, 1 EVERY 8 HOURS, INTRAVENOUS (NOT OTHERWISE SPECIFIED)
     Route: 042
  94. VITAMIN D [Concomitant]
     Active Substance: VITAMIN D NOS
     Indication: Product used for unknown indication
     Dosage: 1 EVERY 1 DAYS
     Route: 048
  95. VITAMIN D [Concomitant]
     Active Substance: VITAMIN D NOS
     Dosage: 1 EVERY 1 DAYS
     Route: 048
  96. WHEY [Concomitant]
     Active Substance: WHEY
     Indication: Nutritional supplementation
     Dosage: 1 EVERY 12 HOURS
     Route: 048
  97. WHEY [Concomitant]
     Active Substance: WHEY
     Dosage: 1 EVERY 1 DAYS
     Route: 048

REACTIONS (2)
  - Acute graft versus host disease [Not Recovered/Not Resolved]
  - Cytomegalovirus infection reactivation [Not Recovered/Not Resolved]
